FAERS Safety Report 18133339 (Version 1)
Quarter: 2020Q3

REPORT INFORMATION
  Report Type: Spontaneous
  Country: IT (occurrence: IT)
  Receive Date: 20200811
  Receipt Date: 20200811
  Transmission Date: 20201103
  Serious: Yes (Other)
  Sender: FDA-Public Use
  Company Number: IT-ELI_LILLY_AND_COMPANY-IT202008002453

PATIENT
  Sex: Male

DRUGS (3)
  1. RAMUCIRUMAB [Suspect]
     Active Substance: RAMUCIRUMAB
     Indication: MALIGNANT NEOPLASM PROGRESSION
     Dosage: UNK, CYCLICAL
     Route: 065
     Dates: start: 201805
  2. RAMUCIRUMAB [Suspect]
     Active Substance: RAMUCIRUMAB
     Dosage: UNK
     Route: 065
  3. TAXOL [Suspect]
     Active Substance: PACLITAXEL
     Indication: MALIGNANT NEOPLASM PROGRESSION
     Dosage: UNK, CYCLICAL
     Route: 065
     Dates: start: 201805, end: 201811

REACTIONS (7)
  - Paraesthesia [Unknown]
  - Hypertension [Recovered/Resolved]
  - Toxicity to various agents [Unknown]
  - Cognitive disorder [Unknown]
  - Motor dysfunction [Unknown]
  - Proteinuria [Recovered/Resolved]
  - Malignant neoplasm progression [Unknown]

NARRATIVE: CASE EVENT DATE: 201811
